FAERS Safety Report 16420369 (Version 1)
Quarter: 2019Q3

REPORT INFORMATION
  Report Type: Spontaneous
  Country: US (occurrence: US)
  Receive Date: 20190610
  Receipt Date: 20190610
  Transmission Date: 20191004
  Serious: Yes (Other)
  Sender: FDA-Public Use
  Company Number: None

PATIENT
  Sex: Male
  Weight: 114.75 kg

DRUGS (2)
  1. UNWASHED POPPY SEEDS / POPPY SEED TEA [Suspect]
     Active Substance: HERBALS\POPPY SEED
     Indication: DRUG DEPENDENCE
     Dosage: ?          OTHER FREQUENCY:POUNDS AS NEEDED;?
     Route: 048
     Dates: start: 20180503
  2. UNWASHED POPPY SEEDS [Concomitant]

REACTIONS (2)
  - Drug dependence [None]
  - Condition aggravated [None]
